FAERS Safety Report 24796985 (Version 2)
Quarter: 2025Q1

REPORT INFORMATION
  Report Type: Spontaneous
  Country: TR (occurrence: TR)
  Receive Date: 20250101
  Receipt Date: 20250122
  Transmission Date: 20250409
  Serious: Yes (Other)
  Sender: JOHNSON AND JOHNSON
  Company Number: TR-BAYER-2024A183891

PATIENT
  Sex: Female

DRUGS (3)
  1. XARELTO [Suspect]
     Active Substance: RIVAROXABAN
     Indication: Cerebral thrombosis
     Dates: start: 2020
  2. CANDEXIL PLUS [Concomitant]
     Indication: Product used for unknown indication
  3. CHOLVAST [Concomitant]
     Indication: Product used for unknown indication

REACTIONS (3)
  - Gingival bleeding [Recovered/Resolved]
  - Hypoaesthesia [Not Recovered/Not Resolved]
  - Tinnitus [Recovered/Resolved]

NARRATIVE: CASE EVENT DATE: 20200101
